FAERS Safety Report 14998421 (Version 1)
Quarter: 2018Q2

REPORT INFORMATION
  Report Type: Spontaneous
  Country: ES (occurrence: ES)
  Receive Date: 20180611
  Receipt Date: 20180611
  Transmission Date: 20180711
  Serious: Yes (Hospitalization)
  Sender: FDA-Public Use
  Company Number: ES-ALSI-201800377

PATIENT
  Age: 58 Year
  Sex: Male

DRUGS (1)
  1. AIR LIQUIDE SANTE INTERNATIONAL (OXYGEN) [Suspect]
     Active Substance: OXYGEN
     Indication: PRODUCT USED FOR UNKNOWN INDICATION
     Route: 055
     Dates: start: 20180524, end: 20180524

REACTIONS (2)
  - Respiration abnormal [Recovering/Resolving]
  - Abdominal distension [Recovering/Resolving]

NARRATIVE: CASE EVENT DATE: 20180524
